FAERS Safety Report 9760371 (Version 2)
Quarter: 2015Q3

REPORT INFORMATION
  Report Type: Spontaneous
  Country: US (occurrence: US)
  Receive Date: 20131216
  Receipt Date: 20150806
  Transmission Date: 20151125
  Serious: No
  Sender: FDA-Public Use
  Company Number: US-GILEAD-2010-0029185

PATIENT
  Age: 62 Year
  Sex: Female
  Weight: 74.84 kg

DRUGS (7)
  1. NIFEDIPINE. [Concomitant]
     Active Substance: NIFEDIPINE
  2. LETAIRIS [Suspect]
     Active Substance: AMBRISENTAN
     Indication: PULMONARY ARTERIAL HYPERTENSION
     Route: 048
     Dates: start: 20090418
  3. NOVOLIN [Concomitant]
     Active Substance: INSULIN HUMAN
  4. HYDRALAZINE HCL [Concomitant]
     Active Substance: HYDRALAZINE HYDROCHLORIDE
  5. PHOSLO [Concomitant]
     Active Substance: CALCIUM ACETATE
  6. REVATIO [Concomitant]
     Active Substance: SILDENAFIL CITRATE
  7. PRAVASTATIN SODIUM. [Concomitant]
     Active Substance: PRAVASTATIN SODIUM

REACTIONS (3)
  - Epistaxis [Unknown]
  - Cough [Unknown]
  - Productive cough [Unknown]
